FAERS Safety Report 7510343-0 (Version None)
Quarter: 2011Q2

REPORT INFORMATION
  Report Type: 
  Country: None (occurrence: None)
  Receive Date: 20110527
  Receipt Date: 20110518
  Transmission Date: 20111010
  Serious: Yes (Hospitalization)
  Sender: FDA-Public Use
  Company Number: DE-ABBOTT-11P-062-0728709-00

PATIENT
  Sex: Female

DRUGS (5)
  1. HUMIRA [Suspect]
     Indication: CROHN'S DISEASE
     Dates: start: 20110223, end: 20110511
  2. BISOPROLOL FUMARATE [Concomitant]
     Indication: PRODUCT USED FOR UNKNOWN INDICATION
  3. CALCIUM D3 [Concomitant]
     Indication: PRODUCT USED FOR UNKNOWN INDICATION
  4. CITALOPRAM 10 [Concomitant]
     Indication: PRODUCT USED FOR UNKNOWN INDICATION
  5. DECORTIN 5 [Concomitant]
     Indication: PRODUCT USED FOR UNKNOWN INDICATION

REACTIONS (5)
  - HOSPITALISATION [None]
  - MOOD ALTERED [None]
  - ALOPECIA [None]
  - PRURITUS [None]
  - MYALGIA [None]
